FAERS Safety Report 16057231 (Version 1)
Quarter: 2019Q1

REPORT INFORMATION
  Report Type: Spontaneous
  Country: US (occurrence: US)
  Receive Date: 20190311
  Receipt Date: 20190311
  Transmission Date: 20190418
  Serious: No
  Sender: FDA-Public Use
  Company Number: US-PFIZER INC-2016445347

PATIENT
  Age: 79 Year
  Sex: Female

DRUGS (1)
  1. LYRICA [Suspect]
     Active Substance: PREGABALIN
     Dosage: 2 DF, DAILY (TAKING TWO PILLS A DAY INSTEAD OF WHAT PRESCRIBED TO HER THREE TIMES A DAY)

REACTIONS (2)
  - Memory impairment [Unknown]
  - Intentional product misuse [Unknown]
